FAERS Safety Report 5505638-6 (Version None)
Quarter: 2007Q4

REPORT INFORMATION
  Report Type: 
  Country: None (occurrence: None)
  Receive Date: 20071102
  Receipt Date: 20071022
  Transmission Date: 20080405
  Serious: Yes (Other)
  Sender: FDA-Public Use
  Company Number: US-PFIZER INC-2007088941

PATIENT
  Sex: Male
  Weight: 86.363 kg

DRUGS (7)
  1. LYRICA [Suspect]
     Indication: NEURALGIA
  2. BUSPAR [Concomitant]
  3. CYMBALTA [Concomitant]
  4. LUNESTA [Concomitant]
  5. CELEBREX [Concomitant]
  6. AMITIZA [Concomitant]
  7. REQUIP [Concomitant]

REACTIONS (2)
  - DRUG INEFFECTIVE [None]
  - FIBROMYALGIA [None]
